FAERS Safety Report 10141587 (Version 6)
Quarter: 2014Q3

REPORT INFORMATION
  Report Type: Spontaneous
  Country: JP (occurrence: JP)
  Receive Date: 20140429
  Receipt Date: 20140805
  Transmission Date: 20150326
  Serious: Yes (Hospitalization)
  Sender: FDA-Public Use
  Company Number: JP-GLAXOSMITHKLINE-B0989193A

PATIENT
  Age: 30 Year
  Sex: Female

DRUGS (12)
  1. SERETIDE [Suspect]
     Active Substance: FLUTICASONE FUROATE\SALMETEROL XINAFOATE
     Indication: ASTHMA
     Route: 055
     Dates: start: 201310
  2. RESPLEN [Concomitant]
     Active Substance: EPRAZINONE
     Dosage: 20MG THREE TIMES PER DAY
     Route: 048
     Dates: start: 201403
  3. UNIPHYL LA [Concomitant]
     Active Substance: THEOPHYLLINE
     Dosage: 400MG TWICE PER DAY
     Route: 048
     Dates: start: 201306
  4. CRAVIT [Suspect]
     Active Substance: LEVOFLOXACIN
     Indication: PRODUCT USED FOR UNKNOWN INDICATION
     Route: 048
     Dates: start: 201401
  5. SERETIDE [Suspect]
     Active Substance: FLUTICASONE FUROATE\SALMETEROL XINAFOATE
     Indication: ASTHMA
     Dosage: 250MCG TWICE PER DAY
     Route: 055
     Dates: start: 20130812, end: 201310
  6. BETAMETHASONE [Suspect]
     Active Substance: BETAMETHASONE
     Indication: PRODUCT USED FOR UNKNOWN INDICATION
     Dosage: 1IUAX TWICE PER DAY
     Route: 048
     Dates: start: 201403
  7. SAXIZON [Suspect]
     Active Substance: HYDROCORTISONE SODIUM SUCCINATE
     Indication: PRODUCT USED FOR UNKNOWN INDICATION
  8. MUCODYNE [Concomitant]
     Active Substance: CARBOCYSTEINE
     Dosage: 250MG THREE TIMES PER DAY
     Route: 048
     Dates: start: 201403
  9. AMBROXOL HYDROCHLORIDE [Concomitant]
     Active Substance: AMBROXOL HYDROCHLORIDE
     Dosage: 15MG THREE TIMES PER DAY
     Route: 048
     Dates: start: 201403
  10. ONON [Concomitant]
     Active Substance: PRANLUKAST
     Dosage: 225MG TWICE PER DAY
     Route: 048
     Dates: start: 201306
  11. CELESTAMINE [Suspect]
     Active Substance: BETAMETHASONE\DEXCHLORPHENIRAMINE MALEATE
     Indication: PRODUCT USED FOR UNKNOWN INDICATION
     Route: 048
     Dates: start: 201310
  12. SOLU-MEDROL [Suspect]
     Active Substance: METHYLPREDNISOLONE SODIUM SUCCINATE
     Indication: PRODUCT USED FOR UNKNOWN INDICATION

REACTIONS (5)
  - Pulmonary tuberculosis [Recovering/Resolving]
  - Pneumonia [Recovering/Resolving]
  - Infection susceptibility increased [Recovering/Resolving]
  - Dysphonia [Recovering/Resolving]
  - Cough [Recovering/Resolving]

NARRATIVE: CASE EVENT DATE: 201403
